FAERS Safety Report 12643992 (Version 1)
Quarter: 2016Q3

REPORT INFORMATION
  Report Type: Spontaneous
  Country: FR (occurrence: FR)
  Receive Date: 20160811
  Receipt Date: 20160811
  Transmission Date: 20161109
  Serious: Yes (Life-Threatening, Hospitalization)
  Sender: FDA-Public Use
  Company Number: FR-PFIZER INC-2016371560

PATIENT
  Age: 83 Year
  Sex: Male

DRUGS (6)
  1. COOLMETEC [Concomitant]
     Active Substance: HYDROCHLOROTHIAZIDE\OLMESARTAN MEDOXOMIL
  2. LERCAN [Concomitant]
     Active Substance: LERCANIDIPINE
  3. URISPAS [Concomitant]
     Active Substance: FLAVOXATE HYDROCHLORIDE
  4. PARIET [Concomitant]
     Active Substance: RABEPRAZOLE SODIUM
  5. UROREC [Concomitant]
     Active Substance: SILODOSIN
  6. FRAGMINE [Suspect]
     Active Substance: DALTEPARIN SODIUM
     Dosage: 0.2 ML, 1X/DAY
     Route: 058
     Dates: start: 20160331, end: 20160408

REACTIONS (3)
  - Gastrointestinal haemorrhage [Recovered/Resolved]
  - Shock haemorrhagic [Recovered/Resolved]
  - Anaemia [Recovered/Resolved]

NARRATIVE: CASE EVENT DATE: 20160407
